FAERS Safety Report 5193280-9 (Version None)
Quarter: 2006Q4

REPORT INFORMATION
  Report Type: 
  Country: None (occurrence: None)
  Receive Date: 20061228
  Receipt Date: 20060821
  Transmission Date: 20070319
  Serious: No
  Sender: FDA-Public Use
  Company Number: US-GLAXOSMITHKLINE-A0617477A

PATIENT
  Age: 66 Year
  Sex: Male

DRUGS (7)
  1. AVODART [Suspect]
     Indication: BENIGN PROSTATIC HYPERPLASIA
     Dosage: .5MG PER DAY
     Route: 048
     Dates: start: 20050901, end: 20060601
  2. UROXATRAL [Concomitant]
  3. SOTALOL HYDROCHLORIDE [Concomitant]
  4. LISINOPRIL [Concomitant]
  5. ACIPHEX [Concomitant]
  6. COREG [Concomitant]
  7. VYTORIN [Concomitant]

REACTIONS (2)
  - BREAST TENDERNESS [None]
  - GYNAECOMASTIA [None]
